FAERS Safety Report 14512447 (Version 1)
Quarter: 2018Q1

REPORT INFORMATION
  Report Type: Spontaneous
  Country: US (occurrence: US)
  Receive Date: 20180209
  Receipt Date: 20180209
  Transmission Date: 20180509
  Serious: No
  Sender: FDA-Public Use
  Company Number: US-ALLERGAN-1716498US

PATIENT
  Age: 24 Year
  Sex: Female

DRUGS (1)
  1. RESTASIS [Suspect]
     Active Substance: CYCLOSPORINE
     Indication: DRY EYE
     Dosage: 2 GTT, BID
     Route: 047
     Dates: start: 2016

REACTIONS (7)
  - Erythema [Unknown]
  - Blepharal pigmentation [Unknown]
  - Inappropriate schedule of drug administration [Unknown]
  - Eye swelling [Unknown]
  - Ocular hyperaemia [Unknown]
  - Eye pain [Unknown]
  - Expired product administered [Unknown]

NARRATIVE: CASE EVENT DATE: 20170420
